FAERS Safety Report 23807734 (Version 1)
Quarter: 2024Q2

REPORT INFORMATION
  Report Type: Spontaneous
  Country: US (occurrence: None)
  Receive Date: 20240501
  Receipt Date: 20240501
  Transmission Date: 20240716
  Serious: Yes (Disabling, Other)
  Sender: FDA-Public Use
  Company Number: None

PATIENT
  Age: 64 Year
  Sex: Female
  Weight: 66.22 kg

DRUGS (6)
  1. LEVOFLOXACIN [Suspect]
     Active Substance: LEVOFLOXACIN
     Indication: Staphylococcal infection
     Dosage: FREQUENCY : DAILY;?
     Route: 048
     Dates: start: 20230929, end: 20231005
  2. GABAPENTIN [Concomitant]
     Active Substance: GABAPENTIN
  3. ATENOLOL [Concomitant]
     Active Substance: ATENOLOL
  4. ACETAMINOPHEN [Concomitant]
     Active Substance: ACETAMINOPHEN
  5. RISEDRONATE SODIUM [Concomitant]
     Active Substance: RISEDRONATE SODIUM
  6. MU LTIVITAMIN [Concomitant]

REACTIONS (14)
  - Toxicity to various agents [None]
  - Tendon pain [None]
  - Pain in extremity [None]
  - Chest pain [None]
  - Myalgia [None]
  - Panic attack [None]
  - Memory impairment [None]
  - Joint noise [None]
  - Dyspnoea [None]
  - Inflammation [None]
  - Blood culture positive [None]
  - Infection [None]
  - Arthralgia [None]
  - Pain in extremity [None]

NARRATIVE: CASE EVENT DATE: 20230901
